FAERS Safety Report 4441013-3 (Version None)
Quarter: 2004Q3

REPORT INFORMATION
  Report Type: 
  Country: None (occurrence: None)
  Receive Date: 20040728
  Receipt Date: 20040414
  Transmission Date: 20050211
  Serious: No
  Sender: FDA-Public Use
  Company Number: USA040464952

PATIENT
  Age: 8 Year
  Sex: Female
  Weight: 25 kg

DRUGS (4)
  1. STRATTERA [Suspect]
     Indication: ATTENTION DEFICIT/HYPERACTIVITY DISORDER
     Dosage: 18 MG DAY
     Dates: start: 20040201
  2. CONCERTA [Concomitant]
  3. ELIDEL (PIMECROLINE) [Concomitant]
  4. PREDNISONE [Concomitant]

REACTIONS (1)
  - ALOPECIA [None]
